FAERS Safety Report 4629074-X (Version None)
Quarter: 2005Q2

REPORT INFORMATION
  Report Type: 
  Country: None (occurrence: None)
  Receive Date: 20050407
  Receipt Date: 20050405
  Transmission Date: 20051028
  Serious: Yes (Hospitalization)
  Sender: FDA-Public Use
  Company Number: 128

PATIENT
  Age: 74 Year
  Sex: Male
  Weight: 69 kg

DRUGS (8)
  1. MELPHALAN [Suspect]
     Indication: MULTIPLE MYELOMA
     Dosage: 140MGM2 PER DAY
     Route: 042
     Dates: start: 20050216
  2. THALIDOMIDE [Suspect]
     Indication: MULTIPLE MYELOMA
     Dosage: 200MG PER DAY
     Route: 048
     Dates: start: 20050123, end: 20050126
  3. ACYCLOVIR [Concomitant]
  4. PANTOPRAZOLE SODIUM [Concomitant]
  5. TOPROL-XL [Concomitant]
  6. FINASTERIDE [Concomitant]
  7. LOPERAMIDE HCL [Concomitant]
     Indication: DIARRHOEA
  8. FLOMAX [Concomitant]

REACTIONS (9)
  - CARDIOVASCULAR DECONDITIONING [None]
  - COLITIS [None]
  - DIARRHOEA [None]
  - MUCOSAL INFLAMMATION [None]
  - PANCYTOPENIA [None]
  - PNEUMONITIS [None]
  - PULMONARY OEDEMA [None]
  - RENAL FAILURE [None]
  - RESPIRATORY SYNCYTIAL VIRUS INFECTION [None]
